FAERS Safety Report 14969252 (Version 1)
Quarter: 2018Q2

REPORT INFORMATION
  Report Type: Spontaneous
  Country: US (occurrence: US)
  Receive Date: 20180511
  Receipt Date: 20180511
  Transmission Date: 20180711
  Serious: Yes (Death, Hospitalization)
  Sender: FDA-Public Use
  Company Number: None

PATIENT
  Age: 5 Year
  Sex: Female
  Weight: 22 kg

DRUGS (4)
  1. PREDNISONE. [Suspect]
     Active Substance: PREDNISONE
     Dates: end: 20180410
  2. MERCAPTOPURINE. [Suspect]
     Active Substance: MERCAPTOPURINE
     Dates: end: 20180419
  3. VINCRISTINE SULFATE. [Suspect]
     Active Substance: VINCRISTINE SULFATE
     Dates: end: 20180406
  4. METHOTREXATE. [Suspect]
     Active Substance: METHOTREXATE
     Dates: end: 20180413

REACTIONS (19)
  - Hyperferritinaemia [None]
  - Pneumonia streptococcal [None]
  - Multiple organ dysfunction syndrome [None]
  - Hypotension [None]
  - Acute kidney injury [None]
  - Cerebrovascular accident [None]
  - Encephalopathy [None]
  - Bradycardia [None]
  - Disseminated intravascular coagulation [None]
  - Dialysis [None]
  - Atelectasis [None]
  - Oliguria [None]
  - Hyperbilirubinaemia [None]
  - Respiratory failure [None]
  - Septic shock [None]
  - Pulmonary haemorrhage [None]
  - Pupillary reflex impaired [None]
  - Cardiac failure [None]
  - Hypertension [None]

NARRATIVE: CASE EVENT DATE: 20180506
